FAERS Safety Report 13900798 (Version 1)
Quarter: 2017Q3

REPORT INFORMATION
  Report Type: Spontaneous
  Country: US (occurrence: US)
  Receive Date: 20170823
  Receipt Date: 20170823
  Transmission Date: 20171127
  Serious: No
  Sender: FDA-Public Use
  Company Number: US-ASTRAZENECA-2017SE86326

PATIENT
  Sex: Female

DRUGS (2)
  1. NEXIUM 24HR [Suspect]
     Active Substance: ESOMEPRAZOLE MAGNESIUM
     Route: 048
  2. NEXIUM 24HR [Suspect]
     Active Substance: ESOMEPRAZOLE MAGNESIUM
     Route: 048

REACTIONS (8)
  - Intentional product use issue [Not Recovered/Not Resolved]
  - Product use complaint [Unknown]
  - Foreign body in respiratory tract [Unknown]
  - Oesophagitis [Unknown]
  - Dysphagia [Unknown]
  - Oesophageal irritation [Unknown]
  - Product physical issue [Unknown]
  - Intentional product misuse [Unknown]
